FAERS Safety Report 10027251 (Version 5)
Quarter: 2015Q4

REPORT INFORMATION
  Report Type: Spontaneous
  Country: US (occurrence: US)
  Receive Date: 20140321
  Receipt Date: 20151026
  Transmission Date: 20160304
  Serious: Yes (Hospitalization, Other)
  Sender: FDA-Public Use
  Company Number: US-009507513-1403USA007740

PATIENT
  Sex: Female

DRUGS (6)
  1. FOSAMAX [Suspect]
     Active Substance: ALENDRONATE SODIUM
     Indication: OSTEOPOROSIS
     Dosage: 70 MG, QW
     Route: 048
     Dates: start: 200401, end: 200803
  2. ALENDRONATE SODIUM. [Suspect]
     Active Substance: ALENDRONATE SODIUM
     Indication: OSTEOPOROSIS
     Dosage: 70 MG, QW
     Route: 048
     Dates: start: 20090520, end: 20120331
  3. CALTRATE [Concomitant]
     Active Substance: CALCIUM CARBONATE
     Dosage: 770 MG, UNK
     Dates: start: 1990
  4. CORTICOSTEROIDS (UNSPECIFIED) [Concomitant]
     Active Substance: UNSPECIFIED INGREDIENT
     Dosage: UNK
     Dates: start: 2001, end: 2013
  5. FOSAMAX [Suspect]
     Active Substance: ALENDRONATE SODIUM
     Dosage: UNK
     Route: 048
     Dates: end: 20120331
  6. FOSAMAX PLUS D [Suspect]
     Active Substance: ALENDRONATE SODIUM\CHOLECALCIFEROL
     Dosage: UNK
     Route: 048
     Dates: start: 20080324, end: 20090302

REACTIONS (35)
  - Effusion [Unknown]
  - Spinal fracture [Unknown]
  - Cough [Unknown]
  - Rotator cuff repair [Unknown]
  - Rotator cuff syndrome [Unknown]
  - Endometriosis [Unknown]
  - Emphysema [Unknown]
  - Vitamin D deficiency [Unknown]
  - Meniere^s disease [Unknown]
  - Abdominal hernia [Unknown]
  - Cholecystectomy [Unknown]
  - Joint effusion [Unknown]
  - Fall [Unknown]
  - Hyperlipidaemia [Unknown]
  - Femur fracture [Unknown]
  - Pneumonia [Unknown]
  - Hypogammaglobulinaemia [Unknown]
  - Intramedullary rod insertion [Unknown]
  - Fall [Unknown]
  - Deafness [Unknown]
  - Femur fracture [Recovered/Resolved]
  - Chronic obstructive pulmonary disease [Not Recovered/Not Resolved]
  - Rotator cuff syndrome [Unknown]
  - Hypokalaemia [Unknown]
  - Dizziness [Unknown]
  - Intramedullary rod insertion [Unknown]
  - Bronchiectasis [Unknown]
  - Anaemia postoperative [Unknown]
  - Hysterectomy [Unknown]
  - Hypoaesthesia [Unknown]
  - Vertigo positional [Unknown]
  - Migraine [Unknown]
  - Musculoskeletal pain [Unknown]
  - Femur fracture [Recovering/Resolving]
  - Chronic obstructive pulmonary disease [Unknown]

NARRATIVE: CASE EVENT DATE: 20120712
